FAERS Safety Report 4335779-0 (Version None)
Quarter: 2004Q2

REPORT INFORMATION
  Report Type: 
  Country: None (occurrence: None)
  Receive Date: 20040406
  Receipt Date: 20040324
  Transmission Date: 20050107
  Serious: Yes (Hospitalization)
  Sender: FDA-Public Use
  Company Number: 04P-087-0251979-00

PATIENT
  Age: 76 Year
  Sex: Female

DRUGS (2)
  1. BIAXIN [Suspect]
     Indication: PNEUMONIA MYCOPLASMAL
     Dosage: 400 MG, PER ORAL
     Route: 048
     Dates: start: 20040218, end: 20040223
  2. EPRAZINONE HYDROCHLORIDE [Concomitant]

REACTIONS (1)
  - INTERSTITIAL LUNG DISEASE [None]
